FAERS Safety Report 8526035-5 (Version None)
Quarter: 2012Q3

REPORT INFORMATION
  Report Type: 
  Country: None (occurrence: None)
  Receive Date: 20120720
  Receipt Date: 20120711
  Transmission Date: 20120928
  Serious: Yes (Hospitalization)
  Sender: FDA-Public Use
  Company Number: IT-BAXTER-2012BAX011045

PATIENT
  Sex: Male

DRUGS (11)
  1. DOXORUBICIN HCL [Suspect]
     Indication: MANTLE CELL LYMPHOMA
     Route: 042
     Dates: start: 20120405, end: 20120412
  2. TRIMETON [Concomitant]
     Route: 042
  3. DEXAMETHASONE SODIUM PHOSPHATE [Concomitant]
     Dosage: 8 MG/2 ML
     Route: 042
  4. MABTHERA [Suspect]
     Indication: MANTLE CELL LYMPHOMA
     Route: 042
     Dates: start: 20120412, end: 20120412
  5. VINCRISTINE [Suspect]
     Dates: start: 20120516
  6. ZOFRAN [Concomitant]
     Dosage: 8 MG/4 ML
     Route: 042
  7. CYCLOPHOSPHAMIDE [Suspect]
     Indication: MANTLE CELL LYMPHOMA
     Route: 042
     Dates: start: 20120405, end: 20120412
  8. DOXORUBICIN HCL [Suspect]
     Dates: start: 20120516
  9. VINCRISTINE [Suspect]
     Indication: MANTLE CELL LYMPHOMA
     Route: 042
     Dates: start: 20120405, end: 20120412
  10. CYCLOPHOSPHAMIDE [Suspect]
     Dates: start: 20120516
  11. MABTHERA [Suspect]
     Dates: start: 20120516

REACTIONS (1)
  - BACTERIAL SEPSIS [None]
